FAERS Safety Report 8924459 (Version 2)
Quarter: 2013Q2

REPORT INFORMATION
  Report Type: Spontaneous
  Country: DE (occurrence: DE)
  Receive Date: 20121126
  Receipt Date: 20130410
  Transmission Date: 20140414
  Serious: Yes (Death, Life-Threatening)
  Sender: FDA-Public Use
  Company Number: GXKR2012DE002596

PATIENT
  Sex: 0

DRUGS (1)
  1. METFORMIN [Suspect]
     Indication: DIABETES MELLITUS
     Dosage: 500 MG, BID

REACTIONS (3)
  - Septic shock [Fatal]
  - Multi-organ failure [Fatal]
  - Lactic acidosis [Fatal]
